FAERS Safety Report 14686809 (Version 1)
Quarter: 2018Q1

REPORT INFORMATION
  Report Type: Spontaneous
  Country: DE (occurrence: DE)
  Receive Date: 20180327
  Receipt Date: 20180327
  Transmission Date: 20180509
  Serious: Yes (Disabling)
  Sender: FDA-Public Use
  Company Number: DE-BAUSCH-BL-2018-006960

PATIENT

DRUGS (2)
  1. PYRIDOSTIGMINE [Suspect]
     Active Substance: PYRIDOSTIGMINE
     Indication: INTESTINAL CONGESTION
     Route: 041
  2. NEOSTIGMINE [Suspect]
     Active Substance: NEOSTIGMINE
     Indication: INTESTINAL CONGESTION
     Route: 041

REACTIONS (1)
  - Paralysis [Unknown]
